FAERS Safety Report 20136981 (Version 1)
Quarter: 2021Q4

REPORT INFORMATION
  Report Type: Spontaneous
  Country: US (occurrence: US)
  Receive Date: 20211201
  Receipt Date: 20211201
  Transmission Date: 20220303
  Serious: No
  Sender: FDA-Public Use
  Company Number: US-MYLANLABS-2021M1077559

PATIENT
  Sex: Male

DRUGS (1)
  1. DYMISTA [Suspect]
     Active Substance: AZELASTINE HYDROCHLORIDE\FLUTICASONE PROPIONATE
     Indication: Sinusitis
     Dosage: 137/50 UG, ONCE OR TWICE A DAY
     Route: 045
     Dates: end: 20211026

REACTIONS (3)
  - Device issue [Unknown]
  - Product label issue [Unknown]
  - Off label use [Unknown]
